FAERS Safety Report 20864541 (Version 5)
Quarter: 2022Q3

REPORT INFORMATION
  Report Type: Spontaneous
  Country: PE (occurrence: PE)
  Receive Date: 20220524
  Receipt Date: 20220927
  Transmission Date: 20221027
  Serious: Yes (Hospitalization, Other)
  Sender: FDA-Public Use
  Company Number: PE-PFIZER INC-202200713163

PATIENT
  Age: 68 Year
  Sex: Female

DRUGS (7)
  1. ENBREL [Suspect]
     Active Substance: ETANERCEPT
     Indication: Rheumatoid arthritis
     Dosage: UNK UNK, WEEKLY
     Route: 065
     Dates: start: 2018, end: 202203
  2. ATORVASTATIN [Concomitant]
     Active Substance: ATORVASTATIN
     Indication: Hypertension
     Dosage: UNK
  3. ASPIRIN [Concomitant]
     Active Substance: ASPIRIN
     Indication: Hypertension
     Dosage: UNK
  4. IRBESARTAN [Concomitant]
     Active Substance: IRBESARTAN
     Indication: Hypertension
     Dosage: UNK
  5. CARVEDILOL [Concomitant]
     Active Substance: CARVEDILOL
     Indication: Hypertension
     Dosage: UNK
  6. PHENYTOIN [Concomitant]
     Active Substance: PHENYTOIN
     Dosage: UNK
  7. CLONAZEPAM [Concomitant]
     Active Substance: CLONAZEPAM
     Dosage: UNK

REACTIONS (5)
  - Pericardial effusion [Recovered/Resolved]
  - Myocardial infarction [Recovered/Resolved]
  - Tuberculosis [Unknown]
  - Stomatitis [Unknown]
  - Feeding disorder [Unknown]

NARRATIVE: CASE EVENT DATE: 20220324
